FAERS Safety Report 6692253-4 (Version None)
Quarter: 2010Q2

REPORT INFORMATION
  Report Type: 
  Country: None (occurrence: None)
  Receive Date: 20100419
  Receipt Date: 20100406
  Transmission Date: 20101027
  Serious: Yes (Other)
  Sender: FDA-Public Use
  Company Number: 100009197

PATIENT
  Age: 88 Year
  Sex: Female

DRUGS (6)
  1. ESCITALOPRAM [Suspect]
     Indication: GRIEF REACTION
     Dosage: 0 MG (10 MG, 1 IN 1 D), ORAL
     Route: 048
     Dates: start: 20090528, end: 20090528
  2. ENALAPRIL MALEATE [Suspect]
     Indication: HYPERTENSION
     Dosage: 10 MG (10 MG, 1 IN 1 D), ORAL
     Route: 048
     Dates: start: 20090528, end: 20090528
  3. KALEORID [Concomitant]
  4. HJERDYL [Concomitant]
  5. FUROSEMID [Concomitant]
  6. VAGIFEM [Concomitant]

REACTIONS (5)
  - ASTHENIA [None]
  - DIZZINESS [None]
  - LOSS OF CONSCIOUSNESS [None]
  - PRESYNCOPE [None]
  - TREMOR [None]
